FAERS Safety Report 13372623 (Version 1)
Quarter: 2017Q1

REPORT INFORMATION
  Report Type: Report from Study
  Country: IN (occurrence: IN)
  Receive Date: 20170327
  Receipt Date: 20170327
  Transmission Date: 20170429
  Serious: Yes (Hospitalization, Other)
  Sender: FDA-Public Use
  Company Number: IN-ROCHE-1907146

PATIENT

DRUGS (5)
  1. LENALIDOMIDE [Suspect]
     Active Substance: LENALIDOMIDE
     Indication: B-CELL LYMPHOMA
     Dosage: FROM DAY 1 TO 14, CYCLES WERE REPEATED AT INTERVALS OF 28 DAYS
     Route: 048
  2. BENDAMUSTINE [Suspect]
     Active Substance: BENDAMUSTINE
     Indication: B-CELL LYMPHOMA
     Dosage: ON DAY 1 AND 2, CYCLES WERE REPEATED AT INTERVALS OF 28 DAYS
     Route: 042
  3. PREDNISOLONE. [Suspect]
     Active Substance: PREDNISOLONE
     Indication: B-CELL LYMPHOMA
     Dosage: FROM DAY 1 TO 5 (MAXIMUM DOSE 100 MG), CYCLES WERE REPEATED AT INTERVALS OF 28 DAYS
     Route: 048
  4. RITUXIMAB [Suspect]
     Active Substance: RITUXIMAB
     Indication: B-CELL LYMPHOMA
     Dosage: ON DAY 1, CYCLES WERE REPEATED AT INTERVALS OF 28 DAYS
     Route: 042
  5. VINCRISTINE [Suspect]
     Active Substance: VINCRISTINE
     Indication: B-CELL LYMPHOMA
     Dosage: ON DAY 1 (MAXIMUM DOSE 2 MG), CYCLES WERE REPEATED AT INTERVALS OF 28 DAYS
     Route: 042

REACTIONS (6)
  - Thrombocytopenia [Unknown]
  - Constipation [Unknown]
  - Anaemia [Unknown]
  - Fatigue [Unknown]
  - Neutropenia [Unknown]
  - Febrile neutropenia [Unknown]
